FAERS Safety Report 15392803 (Version 1)
Quarter: 2018Q3

REPORT INFORMATION
  Report Type: Spontaneous
  Country: GB (occurrence: GB)
  Receive Date: 20180917
  Receipt Date: 20180917
  Transmission Date: 20181010
  Serious: Yes (Other)
  Sender: FDA-Public Use
  Company Number: GB-MYLANLABS-2018M1067871

PATIENT
  Age: 29 Year
  Sex: Male

DRUGS (1)
  1. CLOZARIL [Suspect]
     Active Substance: CLOZAPINE
     Indication: SCHIZOPHRENIA
     Dosage: UNK
     Route: 048
     Dates: start: 20180904

REACTIONS (6)
  - Glomerular filtration rate decreased [Unknown]
  - Blood disorder [Unknown]
  - Blood creatinine increased [Unknown]
  - Myocarditis [Unknown]
  - C-reactive protein increased [Unknown]
  - Malaise [Unknown]

NARRATIVE: CASE EVENT DATE: 201809
